FAERS Safety Report 7595204-3 (Version None)
Quarter: 2011Q3

REPORT INFORMATION
  Report Type: 
  Country: None (occurrence: None)
  Receive Date: 20110707
  Receipt Date: 20110705
  Transmission Date: 20111222
  Serious: Yes (Hospitalization)
  Sender: FDA-Public Use
  Company Number: US-PFIZER INC-2011150123

PATIENT
  Sex: Female
  Weight: 77.098 kg

DRUGS (2)
  1. CHANTIX [Suspect]
     Indication: SMOKING CESSATION THERAPY
     Dosage: 0.5 MG, DAILY
     Route: 048
     Dates: start: 20110301
  2. CHANTIX [Suspect]
     Dosage: 1 MG, 2X/DAY
     Route: 048
     Dates: end: 20110406

REACTIONS (5)
  - OXYGEN SATURATION DECREASED [None]
  - DYSPNOEA [None]
  - BLOOD PRESSURE DECREASED [None]
  - MALAISE [None]
  - HEART RATE DECREASED [None]
